FAERS Safety Report 12257031 (Version 1)
Quarter: 2016Q2

REPORT INFORMATION
  Report Type: Spontaneous
  Country: BR (occurrence: BR)
  Receive Date: 20160412
  Receipt Date: 20160412
  Transmission Date: 20160815
  Serious: Yes (Hospitalization)
  Sender: FDA-Public Use
  Company Number: BR-PFIZER INC-2016202239

PATIENT
  Age: 55 Year
  Sex: Male

DRUGS (1)
  1. FRONTAL [Suspect]
     Active Substance: ALPRAZOLAM
     Dosage: 0.25 MG, UNK
     Dates: start: 2008

REACTIONS (2)
  - Cerebrovascular accident [Unknown]
  - Nervousness [Unknown]

NARRATIVE: CASE EVENT DATE: 2015
